FAERS Safety Report 12115550 (Version 1)
Quarter: 2016Q1

REPORT INFORMATION
  Report Type: Spontaneous
  Country: US (occurrence: US)
  Receive Date: 20160225
  Receipt Date: 20160225
  Transmission Date: 20160526
  Serious: Yes (Hospitalization)
  Sender: FDA-Public Use
  Company Number: US-LPDUSPRD-20160140

PATIENT
  Sex: Male
  Weight: 80 kg

DRUGS (17)
  1. ONDANSETRON INJECTION (4420-01) [Suspect]
     Active Substance: ONDANSETRON
     Dosage: 4 MG
     Route: 042
  2. FENTANYL. [Suspect]
     Active Substance: FENTANYL
     Dosage: 100??G AND ANOTHER100??G
     Route: 042
  3. METRONIDAZOLE. [Suspect]
     Active Substance: METRONIDAZOLE
     Dosage: 500 MG
     Route: 042
  4. FLUOXETINE [Suspect]
     Active Substance: FLUOXETINE HYDROCHLORIDE
     Dosage: 40 MG DAILY
     Route: 065
  5. CISATRACURIUM. [Concomitant]
     Active Substance: CISATRACURIUM
     Dosage: 2-8 IN DIVIDED DOSES
     Route: 042
  6. METOCLOPRAMIDE. [Suspect]
     Active Substance: METOCLOPRAMIDE
     Dosage: 10MG
     Route: 042
  7. MIDAZOLAM [Concomitant]
     Active Substance: MIDAZOLAM\MIDAZOLAM HYDROCHLORIDE
     Dosage: 2 MG
     Route: 042
  8. NEOSTIGMINE [Concomitant]
     Active Substance: NEOSTIGMINE
     Dosage: 5 MG
     Route: 042
  9. SUCCINYLCHOLINE [Concomitant]
     Active Substance: SUCCINYLCHOLINE
     Dosage: 100 MG
     Route: 042
  10. GLYCOPYRROLATE. [Concomitant]
     Active Substance: GLYCOPYRROLATE
     Dosage: 0.6 MG
     Route: 042
  11. PROPOFOL. [Concomitant]
     Active Substance: PROPOFOL
     Dosage: 100 MG
     Route: 042
  12. ETOMIDATE. [Concomitant]
     Active Substance: ETOMIDATE
     Dosage: 20 MG
     Route: 042
  13. SEVOFLURANE 2.4% - 2.9% [Concomitant]
     Dosage: 2.4% - 2.9%
     Route: 055
  14. HYDROMORPHONE [Concomitant]
     Active Substance: HYDROMORPHONE
     Dosage: 5 MG IN DIVIDED DOSES
     Route: 042
  15. METHYLENE BLUE INJECTION, USP (0301-10) 1% [Suspect]
     Active Substance: METHYLENE BLUE
     Dosage: 100 MG
     Route: 042
  16. ERTAPENEM [Concomitant]
     Active Substance: ERTAPENEM
     Dosage: DOSE NOT STATED
     Route: 065
  17. CEFAZOLIN [Concomitant]
     Active Substance: CEFAZOLIN
     Dosage: 2 G
     Route: 042

REACTIONS (5)
  - Metabolic acidosis [None]
  - Serotonin syndrome [Recovered/Resolved]
  - Pseudomonal sepsis [None]
  - Rhabdomyolysis [Recovered/Resolved]
  - Drug interaction [Recovered/Resolved]
